FAERS Safety Report 8485311-5 (Version None)
Quarter: 2012Q2

REPORT INFORMATION
  Report Type: 
  Country: None (occurrence: None)
  Receive Date: 20120627
  Receipt Date: 20120627
  Transmission Date: 20120825
  Serious: No
  Sender: FDA-Public Use
  Company Number: None

PATIENT
  Age: 79 Year
  Sex: Male
  Weight: 98.6 kg

DRUGS (2)
  1. LISINOPRIL [Suspect]
     Indication: CARDIAC FAILURE CONGESTIVE
     Dosage: 2.5 MG EVERY DAY PO
     Route: 048
     Dates: start: 20100421, end: 20120626
  2. LISINOPRIL [Suspect]
     Indication: CORONARY ARTERY DISEASE
     Dosage: 2.5 MG EVERY DAY PO
     Route: 048
     Dates: start: 20100421, end: 20120626

REACTIONS (1)
  - ANGIOEDEMA [None]
